FAERS Safety Report 4372203-6 (Version None)
Quarter: 2004Q2

REPORT INFORMATION
  Report Type: 
  Country: None (occurrence: None)
  Receive Date: 20040607
  Receipt Date: 20040526
  Transmission Date: 20050107
  Serious: Yes (Other)
  Sender: FDA-Public Use
  Company Number: BE-GLAXOSMITHKLINE-B0334562A

PATIENT
  Age: 41 Year
  Sex: Male

DRUGS (1)
  1. TAGAMET [Suspect]
     Indication: DRUG USE FOR UNKNOWN INDICATION
     Dates: start: 20040201

REACTIONS (7)
  - DRUG INTOLERANCE [None]
  - FATIGUE [None]
  - HAEMOCHROMATOSIS [None]
  - HEPATOTOXICITY [None]
  - SERUM FERRITIN INCREASED [None]
  - TACHYCARDIA [None]
  - TENSION [None]
